FAERS Safety Report 19193727 (Version 1)
Quarter: 2021Q2

REPORT INFORMATION
  Report Type: Spontaneous
  Country: US (occurrence: US)
  Receive Date: 20210428
  Receipt Date: 20210428
  Transmission Date: 20210717
  Serious: Yes (Life-Threatening, Hospitalization, Disabling, Other)
  Sender: FDA-Public Use
  Company Number: None

PATIENT
  Age: 61 Year
  Sex: Female
  Weight: 58.5 kg

DRUGS (7)
  1. MAGNESIUM [Concomitant]
     Active Substance: MAGNESIUM
  2. NORCO [Concomitant]
     Active Substance: ACETAMINOPHEN\HYDROCODONE BITARTRATE
  3. VITAMIN B12 [Concomitant]
     Active Substance: CYANOCOBALAMIN
  4. GABAPENTIN  600 MG [Suspect]
     Active Substance: GABAPENTIN
     Indication: NERVE INJURY
  5. PROZAC [Concomitant]
     Active Substance: FLUOXETINE HYDROCHLORIDE
  6. GABAPENTIN 800 MG [Suspect]
     Active Substance: GABAPENTIN
     Indication: NERVE INJURY
  7. IBUPROFEN. [Concomitant]
     Active Substance: IBUPROFEN

REACTIONS (25)
  - Anxiety [None]
  - Dyskinesia [None]
  - Fall [None]
  - Loss of consciousness [None]
  - Electric shock sensation [None]
  - Nervous system disorder [None]
  - Cognitive disorder [None]
  - Gastrointestinal disorder [None]
  - Dysphemia [None]
  - Tremor [None]
  - Tinnitus [None]
  - Weight decreased [None]
  - Vitamin B12 deficiency [None]
  - Concussion [None]
  - Saccadic eye movement [None]
  - Hallucination [None]
  - Panic attack [None]
  - Gait inability [None]
  - Clostridium difficile infection [None]
  - Blood sodium decreased [None]
  - Road traffic accident [None]
  - Vision blurred [None]
  - Muscle disorder [None]
  - Gastrointestinal bacterial overgrowth [None]
  - Blood potassium decreased [None]

NARRATIVE: CASE EVENT DATE: 20161026
